FAERS Safety Report 9391335 (Version 6)
Quarter: 2014Q2

REPORT INFORMATION
  Report Type: Spontaneous
  Country: US (occurrence: US)
  Receive Date: 20130709
  Receipt Date: 20140422
  Transmission Date: 20141212
  Serious: Yes (Death, Hospitalization, Disabling, Other)
  Sender: FDA-Public Use
  Company Number: US-009507513-1307USA003503

PATIENT
  Sex: Male
  Weight: 74 kg

DRUGS (5)
  1. JANUVIA [Suspect]
     Indication: TYPE 2 DIABETES MELLITUS
     Dosage: 50 MG, QD
     Route: 048
     Dates: start: 20090831, end: 20110125
  2. BYETTA [Suspect]
     Indication: PRODUCT USED FOR UNKNOWN INDICATION
     Dosage: UNK
     Dates: start: 200909
  3. ACTOS [Concomitant]
     Indication: TYPE 2 DIABETES MELLITUS
     Dosage: 30-45 MG
     Dates: end: 20110126
  4. GLYBURIDE [Concomitant]
     Indication: TYPE 2 DIABETES MELLITUS
     Dosage: 5-10 MG
     Dates: end: 20110126
  5. OMEGA-3 MARINE TRIGLYCERIDES [Concomitant]
     Indication: HYPERLIPIDAEMIA

REACTIONS (45)
  - Pancreatic carcinoma [Fatal]
  - Disability [Unknown]
  - Metastatic neoplasm [Unknown]
  - Pancreatitis [Unknown]
  - Weight decreased [Unknown]
  - Emotional distress [Unknown]
  - Stent placement [Unknown]
  - Stent placement [Unknown]
  - Anhedonia [Unknown]
  - Transient ischaemic attack [Unknown]
  - Diabetic gastroparesis [Unknown]
  - Sleep disorder [Unknown]
  - Stress [Unknown]
  - Portal hypertension [Unknown]
  - Hepatocellular injury [Unknown]
  - Fear of death [Unknown]
  - Haemangioma [Unknown]
  - Nephrogenic anaemia [Unknown]
  - Diabetes mellitus inadequate control [Unknown]
  - Diabetic neuropathy [Unknown]
  - Adrenal adenoma [Unknown]
  - Bile duct stent insertion [Unknown]
  - Nephrolithiasis [Unknown]
  - Aortic arteriosclerosis [Unknown]
  - Intervertebral disc degeneration [Unknown]
  - Spinal column stenosis [Unknown]
  - Diverticulum intestinal [Unknown]
  - Atelectasis [Unknown]
  - Lobar pneumonia [Unknown]
  - Burning sensation [Unknown]
  - Cardiomegaly [Unknown]
  - Respiratory disorder [Unknown]
  - Aortic valve calcification [Unknown]
  - Pleural effusion [Unknown]
  - Pain [Unknown]
  - Neuropathy peripheral [Unknown]
  - Anxiety [Unknown]
  - Anxiety [Unknown]
  - Pruritus [Unknown]
  - Generalised oedema [Unknown]
  - Hypoaesthesia [Unknown]
  - Oedema peripheral [Unknown]
  - Abdominal pain [Unknown]
  - Constipation [Unknown]
  - Hypoglycaemia [Unknown]
